FAERS Safety Report 5954010-3 (Version None)
Quarter: 2008Q4

REPORT INFORMATION
  Report Type: 
  Country: None (occurrence: None)
  Receive Date: 20081114
  Receipt Date: 20081106
  Transmission Date: 20090506
  Serious: Yes (Life-Threatening, Hospitalization)
  Sender: FDA-Public Use
  Company Number: GB-PFIZER INC-2008094296

PATIENT
  Age: 42 Year
  Sex: Male
  Weight: 70 kg

DRUGS (6)
  1. SULFASALAZINE [Suspect]
     Indication: RHEUMATOID ARTHRITIS
     Dates: start: 20080818, end: 20081017
  2. ETORICOXIB [Concomitant]
     Indication: PSORIATIC ARTHROPATHY
  3. LEVOTHYROXINE SODIUM [Concomitant]
     Indication: HYPOTHYROIDISM
  4. METRONIDAZOLE [Concomitant]
     Indication: ABSCESS
     Dosage: DAILY DOSE:400MG
     Route: 048
     Dates: start: 20081015
  5. ACETAMINOPHEN [Concomitant]
     Indication: ARTHRITIS
  6. PENICILLIN V [Concomitant]
     Indication: OROPHARYNGEAL PAIN
     Dosage: DAILY DOSE:500MG
     Route: 048
     Dates: start: 20081013, end: 20081017

REACTIONS (4)
  - ABSCESS ORAL [None]
  - CELLULITIS [None]
  - MOUTH ULCERATION [None]
  - NEUTROPENIC SEPSIS [None]
